FAERS Safety Report 11769681 (Version 1)
Quarter: 2015Q4

REPORT INFORMATION
  Report Type: Spontaneous
  Country: ES (occurrence: ES)
  Receive Date: 20151123
  Receipt Date: 20151123
  Transmission Date: 20160304
  Serious: Yes (Hospitalization)
  Sender: FDA-Public Use
  Company Number: ES-PERRIGO-15ES011912

PATIENT
  Age: 70 Year
  Sex: Male

DRUGS (18)
  1. AZTREONAM. [Suspect]
     Active Substance: AZTREONAM
     Indication: EXTRADURAL ABSCESS
  2. ANTIINFLAMMATORY AGENTS [Suspect]
     Active Substance: UNSPECIFIED INGREDIENT
     Indication: EXTRADURAL ABSCESS
  3. CLOXACILLIN [Suspect]
     Active Substance: CLOXACILLIN
     Indication: SEPTIC SHOCK
     Dosage: UNK
     Route: 065
  4. AZTREONAM. [Suspect]
     Active Substance: AZTREONAM
     Indication: SEPTIC SHOCK
     Dosage: UNK
     Route: 065
  5. PENICILLIN G                       /00000901/ [Suspect]
     Active Substance: PENICILLIN G
     Indication: EXTRADURAL ABSCESS
  6. AMPICILLIN [Suspect]
     Active Substance: AMPICILLIN
     Indication: EXTRADURAL ABSCESS
  7. CLINDAMYCIN PALMITATE HYDROCHLORIDE RX 15 MG/ML 3G2 [Suspect]
     Active Substance: CLINDAMYCIN PALMITATE HYDROCHLORIDE
     Indication: SEPTIC SHOCK
     Dosage: UNK
     Route: 065
  8. CLINDAMYCIN PALMITATE HYDROCHLORIDE RX 15 MG/ML 3G2 [Suspect]
     Active Substance: CLINDAMYCIN PALMITATE HYDROCHLORIDE
     Indication: EXTRADURAL ABSCESS
  9. AMPICILLIN [Suspect]
     Active Substance: AMPICILLIN
     Indication: SEPTIC SHOCK
     Dosage: UNK
     Route: 065
  10. MEROPENEM. [Suspect]
     Active Substance: MEROPENEM
     Indication: EXTRADURAL ABSCESS
  11. CLOXACILLIN [Suspect]
     Active Substance: CLOXACILLIN
     Indication: EXTRADURAL ABSCESS
  12. CEFTRIAXONE. [Suspect]
     Active Substance: CEFTRIAXONE
     Indication: EXTRADURAL ABSCESS
  13. MEROPENEM. [Suspect]
     Active Substance: MEROPENEM
     Indication: SEPTIC SHOCK
     Dosage: UNK
     Route: 065
  14. DORIPENEM [Suspect]
     Active Substance: DORIPENEM
     Indication: SEPTIC SHOCK
     Dosage: UNK
     Route: 065
  15. DORIPENEM [Suspect]
     Active Substance: DORIPENEM
     Indication: EXTRADURAL ABSCESS
  16. CEFTRIAXONE. [Suspect]
     Active Substance: CEFTRIAXONE
     Indication: SEPTIC SHOCK
     Dosage: UNK
     Route: 065
  17. ANTIINFLAMMATORY AGENTS [Suspect]
     Active Substance: UNSPECIFIED INGREDIENT
     Indication: SEPTIC SHOCK
     Dosage: UNK
     Route: 065
  18. PENICILLIN G                       /00000901/ [Suspect]
     Active Substance: PENICILLIN G
     Indication: SEPTIC SHOCK
     Dosage: UNK
     Route: 065

REACTIONS (4)
  - Hypersensitivity [Recovered/Resolved]
  - Eosinophilia [Recovered/Resolved]
  - Exfoliative rash [Recovered/Resolved]
  - Toxic skin eruption [Recovered/Resolved]
